FAERS Safety Report 8329526-5 (Version None)
Quarter: 2012Q2

REPORT INFORMATION
  Report Type: 
  Country: None (occurrence: None)
  Receive Date: 20120502
  Receipt Date: 20120426
  Transmission Date: 20120825
  Serious: Yes (Hospitalization, Other)
  Sender: FDA-Public Use
  Company Number: CA-ABBOTT-08P-028-0444083-00

PATIENT
  Sex: Male
  Weight: 81.72 kg

DRUGS (3)
  1. XALATAN [Concomitant]
     Indication: GLAUCOMA
     Route: 061
     Dates: start: 19890101
  2. DILAUDID [Concomitant]
     Indication: PAIN
     Route: 048
     Dates: start: 19900101
  3. HUMIRA [Suspect]
     Indication: ANKYLOSING SPONDYLITIS
     Route: 058
     Dates: start: 20070301

REACTIONS (11)
  - IMMUNODEFICIENCY [None]
  - CHRONIC SINUSITIS [None]
  - OROPHARYNGEAL PAIN [None]
  - INSOMNIA [None]
  - SINUSITIS [None]
  - EAR PAIN [None]
  - PNEUMONIA [None]
  - HAEMORRHAGE [None]
  - LIBIDO DECREASED [None]
  - BRONCHOPNEUMONIA [None]
  - HEADACHE [None]
